FAERS Safety Report 6016576-7 (Version None)
Quarter: 2008Q4

REPORT INFORMATION
  Report Type: 
  Country: None (occurrence: None)
  Receive Date: 20081222
  Receipt Date: 20081211
  Transmission Date: 20090506
  Serious: Yes (Hospitalization)
  Sender: FDA-Public Use
  Company Number: PHHY2008US31126

PATIENT

DRUGS (2)
  1. ERL 080A ERL+TAB [Suspect]
     Indication: RENAL TRANSPLANT
     Dosage: 1440 MG / DAY
     Route: 048
     Dates: start: 20070925
  2. ERL 080A ERL+TAB [Suspect]
     Dosage: UNK
     Dates: end: 20080527

REACTIONS (3)
  - LEUKOPENIA [None]
  - MOUTH ULCERATION [None]
  - PYREXIA [None]
